FAERS Safety Report 6338732-0 (Version None)
Quarter: 2009Q3

REPORT INFORMATION
  Report Type: 
  Country: None (occurrence: None)
  Receive Date: 20090903
  Receipt Date: 20090526
  Transmission Date: 20100115
  Serious: No
  Sender: FDA-Public Use
  Company Number: A0779927A

PATIENT
  Age: 50 Year
  Sex: Male
  Weight: 91.4 kg

DRUGS (2)
  1. RELENZA [Suspect]
     Dosage: 2PUFF TWICE PER DAY
     Route: 055
     Dates: start: 20090220, end: 20090222
  2. NO CONCURRENT MEDICATION [Concomitant]

REACTIONS (2)
  - INSOMNIA [None]
  - WHEEZING [None]
